FAERS Safety Report 18351283 (Version 2)
Quarter: 2020Q4

REPORT INFORMATION
  Report Type: Spontaneous
  Country: US (occurrence: US)
  Receive Date: 20201006
  Receipt Date: 20201021
  Transmission Date: 20210114
  Serious: Yes (Other)
  Sender: FDA-Public Use
  Company Number: US-TEVA-2020-US-1835206

PATIENT
  Age: 65 Year
  Sex: Male

DRUGS (5)
  1. TOCILIZUMAB. [Suspect]
     Active Substance: TOCILIZUMAB
     Indication: COVID-19
     Dosage: 2 DOSES OF 800MG (8MG/KG); ADMINISTERED ON DAYS 9 AND 10
     Route: 065
  2. RIBAVIRIN. [Suspect]
     Active Substance: RIBAVIRIN
     Indication: COVID-19
     Route: 065
  3. LOPINAVIR /RITONAVIR [Suspect]
     Active Substance: LOPINAVIR\RITONAVIR
     Indication: COVID-19
     Route: 065
  4. HYDROXYCHLOROQUINE [Suspect]
     Active Substance: HYDROXYCHLOROQUINE
     Indication: COVID-19
     Route: 065
  5. PROPOFOL. [Concomitant]
     Active Substance: PROPOFOL
     Indication: SEDATION
     Dosage: PROPOFOL WAS ADMINISTERED 54 HOURS WITH DOSE RANGING FROM 5 TO 60MCG/KG/MIN, AND PROPOFOL WAS DIS...
     Route: 050

REACTIONS (3)
  - Pancreatitis acute [Unknown]
  - Hypertriglyceridaemia [Unknown]
  - Off label use [Unknown]
